FAERS Safety Report 20972950 (Version 4)
Quarter: 2022Q4

REPORT INFORMATION
  Report Type: Report from Study
  Country: US (occurrence: US)
  Receive Date: 20220617
  Receipt Date: 20221012
  Transmission Date: 20230113
  Serious: Yes (Other)
  Sender: FDA-Public Use
  Company Number: US-ABBVIE-22K-163-4433730-00

PATIENT
  Sex: Female

DRUGS (3)
  1. RINVOQ [Suspect]
     Active Substance: UPADACITINIB
     Indication: Rheumatoid arthritis
     Route: 048
  2. MODERNA COVID-19 VACCINE [Suspect]
     Active Substance: ELASOMERAN
     Indication: COVID-19 immunisation
     Dosage: TIME INTERVAL: 1 TOTAL: FIRST DOSE
     Route: 030
  3. MODERNA COVID-19 VACCINE [Suspect]
     Active Substance: ELASOMERAN
     Indication: COVID-19 immunisation
     Dosage: TIME INTERVAL: 1 TOTAL: SECOND DOSE
     Route: 030

REACTIONS (21)
  - Loss of consciousness [Unknown]
  - Arthritis [Unknown]
  - Fatigue [Unknown]
  - Neuropathy peripheral [Not Recovered/Not Resolved]
  - Depression [Unknown]
  - Ankle fracture [Not Recovered/Not Resolved]
  - Arthralgia [Unknown]
  - Insomnia [Unknown]
  - Musculoskeletal stiffness [Recovered/Resolved]
  - Peripheral swelling [Recovered/Resolved]
  - Immunisation reaction [Recovered/Resolved]
  - Clostridium difficile infection [Unknown]
  - Pyrexia [Unknown]
  - Hallucination [Unknown]
  - Delusion [Unknown]
  - Carpal tunnel syndrome [Not Recovered/Not Resolved]
  - Fall [Recovering/Resolving]
  - Head injury [Unknown]
  - Back injury [Unknown]
  - Back pain [Unknown]
  - Constipation [Not Recovered/Not Resolved]

NARRATIVE: CASE EVENT DATE: 20200101
